FAERS Safety Report 8732447 (Version 2)
Quarter: 2012Q4

REPORT INFORMATION
  Report Type: 
  Country: US (occurrence: US)
  Receive Date: 20120820
  Receipt Date: 20120907
  Transmission Date: 20130627
  Serious: Yes (Death, Life-Threatening, Other)
  Sender: FDA-Public Use
  Company Number: US-NAPPMUNDI-USA-2012-0091436

PATIENT
  Age: 78 None
  Sex: Male

DRUGS (6)
  1. DILAUDID INJECTION [Suspect]
     Indication: PAIN
     Dosage: 0.5mg-2mg, every 2 hours as needed
     Route: 042
     Dates: start: 20120622, end: 20120707
  2. PROPOFOL [Suspect]
     Indication: PAIN
     Dosage: UNK
     Dates: start: 20120619, end: 20120622
  3. SCOPOLAMINE [Suspect]
     Indication: PROPHYLAXIS
     Dosage: 1 Patch, 1.5mg every 72 hours
     Route: 062
  4. ROCEPHIN [Suspect]
     Indication: PROPHYLAXIS
     Route: 042
  5. ZITHROMAX [Suspect]
     Indication: PROPHYLAXIS
     Route: 042
  6. VANCOMYCIN [Suspect]
     Indication: PROPHYLAXIS
     Route: 042

REACTIONS (17)
  - Atrial fibrillation [Fatal]
  - Respiratory failure [Fatal]
  - Cardiopulmonary failure [Fatal]
  - Laryngeal disorder [Unknown]
  - Reflexes abnormal [Unknown]
  - Cardiomegaly [Unknown]
  - Splenomegaly [Unknown]
  - Kidney enlargement [Unknown]
  - Abdominal distension [Unknown]
  - Aphagia [Unknown]
  - Ileus [Not Recovered/Not Resolved]
  - Dry mouth [Not Recovered/Not Resolved]
  - Sedation [Not Recovered/Not Resolved]
  - Dyspnoea [Not Recovered/Not Resolved]
  - Cardiac disorder [None]
  - Dysphagia [None]
  - Aspiration [None]
